FAERS Safety Report 6960380-X (Version None)
Quarter: 2010Q3

REPORT INFORMATION
  Report Type: 
  Country: None (occurrence: None)
  Receive Date: 20100901
  Receipt Date: 20100824
  Transmission Date: 20110219
  Serious: Yes (Hospitalization, Other)
  Sender: FDA-Public Use
  Company Number: JP-JNJFOC-20100306328

PATIENT
  Sex: Female
  Weight: 36 kg

DRUGS (12)
  1. REMICADE [Suspect]
     Indication: RHEUMATOID ARTHRITIS
     Dosage: 4 INFUSIONS, UNSPECIFIED DATES
     Route: 042
  2. REMICADE [Suspect]
     Dosage: 2 INFUSIONS, UNSPECIFIED DATES
     Route: 042
  3. REMICADE [Suspect]
     Dosage: TOTAL NUMBER OF INFUSIONS WAS 14
     Route: 042
  4. REMICADE [Suspect]
     Route: 042
  5. REMICADE [Suspect]
     Route: 042
  6. REMICADE [Suspect]
     Route: 042
  7. REMICADE [Suspect]
     Route: 042
  8. REMICADE [Suspect]
     Dosage: 1 YEAR AND 6 MONTHS
     Route: 042
  9. REMICADE [Suspect]
     Route: 042
  10. REMICADE [Suspect]
     Route: 042
  11. RIMATIL [Suspect]
     Indication: RHEUMATOID ARTHRITIS
     Route: 048
  12. METOLATE [Suspect]
     Indication: RHEUMATOID ARTHRITIS
     Route: 048

REACTIONS (1)
  - LYMPHOMA [None]
